FAERS Safety Report 26104872 (Version 1)
Quarter: 2025Q4

REPORT INFORMATION
  Report Type: Spontaneous
  Country: EU (occurrence: EU)
  Receive Date: 20251130
  Receipt Date: 20251130
  Transmission Date: 20260117
  Serious: Yes (Death, Other)
  Sender: ALKEM
  Company Number: EU-ALKEM LABORATORIES LIMITED-SK-ALKEM-2025-08084

PATIENT
  Age: 35 Year
  Sex: Male

DRUGS (4)
  1. MYCOPHENOLATE MOFETIL [Suspect]
     Active Substance: MYCOPHENOLATE MOFETIL
     Indication: Immunosuppressant drug therapy
     Dosage: UNK
     Route: 065
  2. TACROLIMUS [Suspect]
     Active Substance: TACROLIMUS
     Indication: Immunosuppressant drug therapy
     Dosage: UNK
     Route: 065
  3. METHYLPREDNISOLONE [Suspect]
     Active Substance: METHYLPREDNISOLONE
     Indication: Liver transplant rejection
     Dosage: 500 MG/DAY
     Route: 065
  4. PREDNISONE [Suspect]
     Active Substance: PREDNISONE
     Indication: Immunosuppressant drug therapy
     Dosage: UNK
     Route: 065

REACTIONS (10)
  - Pneumonia [Fatal]
  - Phaeohyphomycosis [Unknown]
  - Liver transplant rejection [Unknown]
  - Pseudomonas infection [Unknown]
  - Pneumonia klebsiella [Unknown]
  - Enterococcal infection [Unknown]
  - Sepsis [Unknown]
  - Subcutaneous abscess [Unknown]
  - Disease recurrence [Unknown]
  - Bacterial infection [Unknown]
